FAERS Safety Report 15392952 (Version 3)
Quarter: 2019Q2

REPORT INFORMATION
  Report Type: Report from Study
  Country: KR (occurrence: KR)
  Receive Date: 20180917
  Receipt Date: 20190528
  Transmission Date: 20190711
  Serious: Yes (Other)
  Sender: FDA-Public Use
  Company Number: PHHY2018KR100297

PATIENT
  Age: 45 Year
  Sex: Female

DRUGS (8)
  1. XAMIOL [Concomitant]
     Active Substance: BETAMETHASONE DIPROPIONATE\CALCIPOTRIENE HYDRATE
     Indication: PUSTULAR PSORIASIS
     Dosage: 60 G/BT, UNK
     Route: 065
     Dates: start: 20180629, end: 20180726
  2. MEDICOX [Concomitant]
     Dosage: 7.5 MG, UNK
     Route: 065
     Dates: start: 20180808
  3. COSENTYX [Suspect]
     Active Substance: SECUKINUMAB
     Dosage: 150 MG, UNK
     Route: 058
     Dates: start: 20180828
  4. NADIXA [Concomitant]
     Indication: PUSTULAR PSORIASIS
     Dosage: 10 MG, UNK
     Route: 065
     Dates: start: 20180727
  5. COSENTYX [Suspect]
     Active Substance: SECUKINUMAB
     Indication: ANKYLOSING SPONDYLITIS
     Dosage: 150 MG, UNK
     Route: 058
     Dates: start: 20180703, end: 20180703
  6. ALITOC [Concomitant]
     Indication: PUSTULAR PSORIASIS
     Dosage: 10 MG, UNK
     Route: 065
     Dates: start: 20180628
  7. AIRPEN [Concomitant]
     Indication: ANKYLOSING SPONDYLITIS
     Dosage: 100 MG, UNK
     Route: 065
     Dates: start: 20180804, end: 20180807
  8. MEDICOX [Concomitant]
     Indication: ANKYLOSING SPONDYLITIS
     Dosage: 7.5 MG, UNK
     Route: 065
     Dates: start: 20180803, end: 20180803

REACTIONS (1)
  - Nephritis [Not Recovered/Not Resolved]

NARRATIVE: CASE EVENT DATE: 20180731
